FAERS Safety Report 7498816-0 (Version None)
Quarter: 2011Q2

REPORT INFORMATION
  Report Type: 
  Country: None (occurrence: None)
  Receive Date: 20110524
  Receipt Date: 20110510
  Transmission Date: 20111010
  Serious: Yes (Hospitalization, Other)
  Sender: FDA-Public Use
  Company Number: KR-RANBAXY-2011RR-44014

PATIENT
  Age: 58 Year
  Sex: Female

DRUGS (8)
  1. RISPERIDONE [Suspect]
     Indication: SCHIZOPHRENIA
     Dosage: 2 MG, UNK
     Dates: start: 20090101
  2. OLANZAPINE [Suspect]
     Dosage: 10 MG, UNK
     Route: 048
     Dates: end: 20100901
  3. OLANZAPINE [Suspect]
     Dosage: 20 MG, UNK
     Dates: start: 20090101
  4. RISPERIDONE [Suspect]
     Dosage: UNK MG, UNK
  5. PALIPERIDONE [Suspect]
     Dosage: 3 MG, UNK
  6. PALIPERIDONE [Suspect]
     Dosage: 6 MG, UNK
  7. RISPERIDONE [Suspect]
     Dosage: 4 MG, UNK
  8. OLANZAPINE [Suspect]
     Indication: SCHIZOPHRENIA
     Dosage: 10 MG, UNK
     Route: 048
     Dates: start: 20100901

REACTIONS (4)
  - DIABETES MELLITUS [None]
  - WEIGHT INCREASED [None]
  - NEUROLEPTIC MALIGNANT SYNDROME [None]
  - EXTRAPYRAMIDAL DISORDER [None]
